FAERS Safety Report 5702769-2 (Version None)
Quarter: 2008Q2

REPORT INFORMATION
  Report Type: 
  Country: None (occurrence: None)
  Receive Date: 20080411
  Receipt Date: 20080404
  Transmission Date: 20081010
  Serious: Yes (Hospitalization)
  Sender: FDA-Public Use
  Company Number: B0516045A

PATIENT
  Age: 72 Year
  Sex: Male

DRUGS (9)
  1. ARIXTRA [Suspect]
     Indication: PORTAL VEIN THROMBOSIS
     Route: 058
     Dates: start: 20070827, end: 20070911
  2. NAPROXEN [Suspect]
     Indication: BACK PAIN
     Dosage: 500MG TWICE PER DAY
     Route: 048
     Dates: start: 20070823, end: 20070826
  3. NOLVADEX [Concomitant]
  4. ELISOR [Concomitant]
  5. LASILIX [Concomitant]
  6. BISOPROLOL FUMARATE AND HYDROCHLOROTHIAZIDE [Concomitant]
  7. AVLOCARDYL [Concomitant]
  8. SPIRONOLACTONE [Concomitant]
  9. GLUCOPHAGE [Concomitant]

REACTIONS (6)
  - BILIARY TRACT DISORDER [None]
  - FEELING ABNORMAL [None]
  - GASTROINTESTINAL HAEMORRHAGE [None]
  - HAEMATEMESIS [None]
  - MELAENA [None]
  - VARICES OESOPHAGEAL [None]
